FAERS Safety Report 10518189 (Version 5)
Quarter: 2015Q2

REPORT INFORMATION
  Report Type: Spontaneous
  Country: IE (occurrence: IE)
  Receive Date: 20141015
  Receipt Date: 20150622
  Transmission Date: 20150821
  Serious: Yes (Life-Threatening, Other)
  Sender: FDA-Public Use
  Company Number: IE-ALEXION PHARMACEUTICALS INC.-A201403897

PATIENT

DRUGS (2)
  1. SOLIRIS [Suspect]
     Active Substance: ECULIZUMAB
     Indication: HAEMOLYTIC URAEMIC SYNDROME
     Dosage: 300 MG, UNK
     Route: 042
     Dates: start: 20100805
  2. SOLIRIS [Suspect]
     Active Substance: ECULIZUMAB
     Dosage: 600 MG, UNK
     Route: 042
     Dates: start: 201308

REACTIONS (4)
  - Tonsillitis [Unknown]
  - Meningococcal sepsis [Recovered/Resolved]
  - Platelet count decreased [Unknown]
  - Viral infection [Unknown]

NARRATIVE: CASE EVENT DATE: 20130110
